FAERS Safety Report 25812253 (Version 1)
Quarter: 2025Q3

REPORT INFORMATION
  Report Type: Spontaneous
  Country: US (occurrence: US)
  Receive Date: 20250917
  Receipt Date: 20250917
  Transmission Date: 20251020
  Serious: No
  Sender: MANKIND PHARMA
  Company Number: US-MankindUS-000443

PATIENT
  Age: 74 Year
  Sex: Female

DRUGS (2)
  1. OFLOXACIN [Suspect]
     Active Substance: OFLOXACIN
     Indication: Eye infection
     Dates: start: 20250710, end: 20250713
  2. OFLOXACIN [Suspect]
     Active Substance: OFLOXACIN
     Indication: Eye infection
     Dates: start: 20250710, end: 20250713

REACTIONS (8)
  - Skin burning sensation [Unknown]
  - Eye swelling [Unknown]
  - Eye pruritus [Unknown]
  - Sleep disorder [Unknown]
  - Rash [Unknown]
  - Skin exfoliation [Recovering/Resolving]
  - Ear discomfort [Unknown]
  - Ear pruritus [Unknown]

NARRATIVE: CASE EVENT DATE: 20250701
